FAERS Safety Report 12706573 (Version 1)
Quarter: 2016Q3

REPORT INFORMATION
  Report Type: Report from Study
  Country: US (occurrence: US)
  Receive Date: 20160901
  Receipt Date: 20160901
  Transmission Date: 20161109
  Serious: Yes (Other)
  Sender: FDA-Public Use
  Company Number: US-JNJFOC-20160300033

PATIENT
  Age: 71 Year
  Sex: Male

DRUGS (15)
  1. TOPROL XL [Concomitant]
     Active Substance: METOPROLOL SUCCINATE
  2. LANTUS [Concomitant]
     Active Substance: INSULIN GLARGINE
  3. GABAPENTIN. [Concomitant]
     Active Substance: GABAPENTIN
  4. CALCIUM [Concomitant]
     Active Substance: CALCIUM
  5. IMBRUVICA [Suspect]
     Active Substance: IBRUTINIB
     Indication: MANTLE CELL LYMPHOMA
     Route: 048
     Dates: start: 20141104
  6. KEPPRA [Suspect]
     Active Substance: LEVETIRACETAM
     Indication: SEIZURE
     Dates: start: 201602
  7. REMERON [Concomitant]
     Active Substance: MIRTAZAPINE
  8. QUETIAPINE. [Concomitant]
     Active Substance: QUETIAPINE
  9. ALBUTEROL. [Concomitant]
     Active Substance: ALBUTEROL
  10. ACYCLOVIR. [Concomitant]
     Active Substance: ACYCLOVIR
  11. PLAVIX [Suspect]
     Active Substance: CLOPIDOGREL BISULFATE
     Indication: CEREBROVASCULAR ACCIDENT
     Dates: start: 1989
  12. SINGULAIR [Concomitant]
     Active Substance: MONTELUKAST SODIUM
  13. PRILOSEC [Concomitant]
     Active Substance: OMEPRAZOLE MAGNESIUM
  14. GLUCOSAMINE [Concomitant]
     Active Substance: GLUCOSAMINE
  15. TYLENOL [Concomitant]
     Active Substance: ACETAMINOPHEN

REACTIONS (9)
  - Anxiety [Unknown]
  - Wound infection staphylococcal [Not Recovered/Not Resolved]
  - Haemarthrosis [Unknown]
  - Fall [Not Recovered/Not Resolved]
  - Seizure [Unknown]
  - Headache [Unknown]
  - Skin atrophy [Unknown]
  - Haemorrhage [Unknown]
  - Haemorrhagic diathesis [Unknown]

NARRATIVE: CASE EVENT DATE: 2016
